FAERS Safety Report 17999450 (Version 2)
Quarter: 2020Q3

REPORT INFORMATION
  Report Type: Spontaneous
  Country: US (occurrence: US)
  Receive Date: 20200709
  Receipt Date: 20200727
  Transmission Date: 20201103
  Serious: Yes (Hospitalization)
  Sender: FDA-Public Use
  Company Number: US-ROCHE-2638781

PATIENT
  Age: 79 Year
  Sex: Female
  Weight: 69.01 kg

DRUGS (11)
  1. METOPROLOL SUCCINATE ER [Concomitant]
     Active Substance: METOPROLOL SUCCINATE
  2. VENLAFAXINE HCL [Concomitant]
     Active Substance: VENLAFAXINE HYDROCHLORIDE
  3. PREDNISONE. [Concomitant]
     Active Substance: PREDNISONE
  4. IRON [Concomitant]
     Active Substance: IRON
  5. OXYGEN. [Concomitant]
     Active Substance: OXYGEN
  6. ESBRIET [Suspect]
     Active Substance: PIRFENIDONE
     Indication: IDIOPATHIC PULMONARY FIBROSIS
     Dosage: TAKE AS DIRECTED VIA INSTRUCTION SHEET (ON LABEL) ;ONGOING: NO
     Route: 048
     Dates: end: 20200615
  7. VALSARTAN. [Concomitant]
     Active Substance: VALSARTAN
  8. GABAPENTIN. [Concomitant]
     Active Substance: GABAPENTIN
  9. SIMVASTATIN. [Concomitant]
     Active Substance: SIMVASTATIN
  10. OMEPRAZOLE. [Concomitant]
     Active Substance: OMEPRAZOLE
  11. TIZANIDINE. [Concomitant]
     Active Substance: TIZANIDINE

REACTIONS (4)
  - Dyspnoea [Recovering/Resolving]
  - Asthenia [Unknown]
  - Back pain [Not Recovered/Not Resolved]
  - Muscle tightness [Unknown]

NARRATIVE: CASE EVENT DATE: 202006
